FAERS Safety Report 7445208-6 (Version None)
Quarter: 2011Q2

REPORT INFORMATION
  Report Type: 
  Country: None (occurrence: None)
  Receive Date: 20110429
  Receipt Date: 20110418
  Transmission Date: 20111010
  Serious: Yes (Other)
  Sender: FDA-Public Use
  Company Number: IE-SANOFI-AVENTIS-2011SA023891

PATIENT
  Age: 63 Year
  Sex: Female

DRUGS (7)
  1. CALCICHEW D3 [Concomitant]
     Dosage: DOSE:1 UNIT(S)
     Route: 065
  2. BISOPROLOL [Concomitant]
     Route: 065
  3. LEVOTHYROXINE SODIUM [Concomitant]
     Indication: THYROID THERAPY
     Route: 065
  4. WARFARIN [Concomitant]
     Indication: ATRIAL FIBRILLATION
     Dosage: AS PER INR
     Route: 065
  5. ONE-ALPHA [Concomitant]
     Route: 065
  6. MULTAQ [Suspect]
     Indication: ATRIAL FIBRILLATION
     Route: 048
  7. ATORVASTATIN [Concomitant]
     Indication: BLOOD CHOLESTEROL INCREASED
     Route: 065

REACTIONS (4)
  - PAIN IN EXTREMITY [None]
  - HEADACHE [None]
  - CHEST PAIN [None]
  - NECK PAIN [None]
